FAERS Safety Report 24378669 (Version 1)
Quarter: 2024Q3

REPORT INFORMATION
  Report Type: Spontaneous
  Country: US (occurrence: None)
  Receive Date: 20240929
  Receipt Date: 20240929
  Transmission Date: 20241017
  Serious: Yes (Death)
  Sender: Public
  Company Number: None

PATIENT
  Age: 64 Year
  Sex: Male

DRUGS (1)
  1. SEMAGLUTIDE [Suspect]
     Active Substance: SEMAGLUTIDE
     Indication: Weight decreased
     Dosage: OTHER QUANTITY : 0.5 INJECTION(S)?OTHER FREQUENCY : WEEKLY
     Route: 058
     Dates: start: 20240817

REACTIONS (6)
  - Fatigue [None]
  - Gastrointestinal disorder [None]
  - Nausea [None]
  - Irritability [None]
  - Depressed mood [None]
  - Completed suicide [None]

NARRATIVE: CASE EVENT DATE: 20240914
